FAERS Safety Report 4835176-5 (Version None)
Quarter: 2005Q4

REPORT INFORMATION
  Report Type: 
  Country: None (occurrence: None)
  Receive Date: 20051114
  Receipt Date: 20050803
  Transmission Date: 20060501
  Serious: Yes (Hospitalization)
  Sender: FDA-Public Use
  Company Number: COT_0153_2005

PATIENT
  Age: 64 Year
  Sex: Female
  Weight: 73.0291 kg

DRUGS (17)
  1. VENTAVIS [Suspect]
     Indication: PULMONARY HYPERTENSION
     Dosage: 5 MCG 6XD IH
     Route: 055
     Dates: start: 20050531
  2. VENTAVIS [Suspect]
     Indication: PULMONARY HYPERTENSION
     Dosage: 2.5 MCG 6XD IH
     Route: 055
     Dates: start: 20050517, end: 20050531
  3. GABAPENTIN [Concomitant]
  4. FUROSEMIDE [Concomitant]
  5. SPIRONOLACTONE [Concomitant]
  6. GLIPIZIDE [Concomitant]
  7. LEVOTHYROXINE SODIUM [Concomitant]
  8. ALLOPURINOL [Concomitant]
  9. PANTOPRAZOLE SODIUM [Concomitant]
  10. AMITRIPTYLINE HCL [Concomitant]
  11. ROSIGLITAZONE MALEATE [Concomitant]
  12. FLUTICASONE PROPIONATE [Concomitant]
  13. WARFARIN SODIUM [Concomitant]
  14. POTASSIUM CHLORIDE [Concomitant]
  15. DOCUSATE SODIUM [Concomitant]
  16. MULTI-VITAMINS [Concomitant]
  17. SENNA [Concomitant]

REACTIONS (3)
  - ATRIAL FIBRILLATION [None]
  - DRUG INEFFECTIVE [None]
  - HYPERTHYROIDISM [None]
